FAERS Safety Report 13928488 (Version 1)
Quarter: 2017Q3

REPORT INFORMATION
  Report Type: Spontaneous
  Country: US (occurrence: US)
  Receive Date: 20170901
  Receipt Date: 20170901
  Transmission Date: 20171127
  Serious: Yes (Disabling)
  Sender: FDA-Public Use
  Company Number: US-ROCHE-1968367

PATIENT
  Age: 62 Year
  Sex: Female
  Weight: 51.3 kg

DRUGS (7)
  1. ESTRING [Concomitant]
     Active Substance: ESTRADIOL
     Route: 065
  2. AZITHROMYCIN ANHYDROUS. [Suspect]
     Active Substance: AZITHROMYCIN ANHYDROUS
     Indication: PHARYNGITIS STREPTOCOCCAL
     Route: 048
     Dates: start: 20161012
  3. MACROBID (UNITED STATES) [Concomitant]
     Indication: INFECTION
     Route: 065
  4. ACYCLOVIR. [Concomitant]
     Active Substance: ACYCLOVIR
     Indication: HERPES VIRUS INFECTION
     Route: 065
  5. FLEXERIL (CEFIXIME) [Concomitant]
     Indication: MUSCLE SPASMS
     Route: 065
  6. ALPRAZOLAM. [Concomitant]
     Active Substance: ALPRAZOLAM
     Indication: ANXIETY
     Route: 065
  7. PEGASYS [Suspect]
     Active Substance: PEGINTERFERON ALFA-2A
     Indication: HEPATITIS C
     Route: 065
     Dates: start: 2001

REACTIONS (12)
  - Cognitive disorder [Unknown]
  - Unevaluable event [Unknown]
  - Fatigue [Unknown]
  - Tinnitus [Unknown]
  - Ageusia [Not Recovered/Not Resolved]
  - Pain [Unknown]
  - Arthralgia [Unknown]
  - Myalgia [Unknown]
  - Headache [Unknown]
  - Depression [Unknown]
  - Gait inability [Unknown]
  - Anosmia [Not Recovered/Not Resolved]

NARRATIVE: CASE EVENT DATE: 20161012
